FAERS Safety Report 9225528 (Version 2)
Quarter: 2013Q2

REPORT INFORMATION
  Report Type: Spontaneous
  Country: US (occurrence: US)
  Receive Date: 20130411
  Receipt Date: 20130503
  Transmission Date: 20140414
  Serious: No
  Sender: FDA-Public Use
  Company Number: US-PFIZER INC-2013113832

PATIENT
  Age: 59 Year
  Sex: Female

DRUGS (7)
  1. LYRICA [Suspect]
     Indication: NEURALGIA
     Dosage: UNK
     Route: 048
     Dates: start: 201301, end: 201301
  2. LYRICA [Suspect]
     Indication: NERVE INJURY
     Dosage: 200 MG, 2X/DAY
     Route: 048
     Dates: start: 201301, end: 2013
  3. LYRICA [Suspect]
     Dosage: 200 MG, 1X/DAY
     Route: 048
     Dates: start: 2013, end: 2013
  4. LYRICA [Suspect]
     Dosage: 200 MG, ALTERNATE DAY
     Route: 048
     Dates: start: 2013
  5. LYRICA [Suspect]
     Dosage: UNK
  6. LISINOPRIL [Concomitant]
     Indication: HYPERTENSION
     Dosage: 20 MG, 1X/DAY
  7. ATORVASTATIN [Concomitant]
     Indication: BLOOD CHOLESTEROL INCREASED
     Dosage: UNK

REACTIONS (6)
  - Withdrawal syndrome [Not Recovered/Not Resolved]
  - Chills [Not Recovered/Not Resolved]
  - Pain [Not Recovered/Not Resolved]
  - Nausea [Not Recovered/Not Resolved]
  - Malaise [Not Recovered/Not Resolved]
  - Insomnia [Unknown]
